FAERS Safety Report 22611325 (Version 1)
Quarter: 2023Q2

REPORT INFORMATION
  Report Type: Spontaneous
  Country: US (occurrence: None)
  Receive Date: 20230615
  Receipt Date: 20230615
  Transmission Date: 20230721
  Serious: Yes (Hospitalization)
  Sender: FDA-Public Use
  Company Number: None

PATIENT
  Sex: Female

DRUGS (2)
  1. PANZYGA [Suspect]
     Active Substance: HUMAN IMMUNOGLOBULIN G
     Indication: Hypogammaglobulinaemia
     Dosage: OTHER STRENGTH : 5GM/50ML;?FREQUENCY : EVERY OTHER WEEK;?
     Route: 042
     Dates: start: 202303
  2. PANZYGA [Suspect]
     Active Substance: HUMAN IMMUNOGLOBULIN G
     Indication: Hypogammaglobulinaemia
     Dosage: OTHER STRENGTH : 20GM/200ML;?OTHER QUANTITY : 25GM;?FREQUENCY : EVERY OTHER WEEK;?
     Dates: start: 202303

REACTIONS (1)
  - Asthma [None]

NARRATIVE: CASE EVENT DATE: 20230525
